FAERS Safety Report 7088840-4 (Version None)
Quarter: 2010Q4

REPORT INFORMATION
  Report Type: 
  Country: None (occurrence: None)
  Receive Date: 20101108
  Receipt Date: 20101102
  Transmission Date: 20110411
  Serious: Yes (Life-Threatening, Other)
  Sender: FDA-Public Use
  Company Number: PHHY2010FI51235

PATIENT
  Age: 57 Year
  Sex: Female

DRUGS (2)
  1. LEPONEX [Suspect]
     Dosage: UNK
  2. LEPONEX [Suspect]
     Dosage: 100 MG /DAILY
     Dates: end: 20100810

REACTIONS (3)
  - AGRANULOCYTOSIS [None]
  - NEUTROPHIL COUNT DECREASED [None]
  - PSEUDOMONAL SEPSIS [None]
